FAERS Safety Report 9995681 (Version 1)
Quarter: 2014Q1

REPORT INFORMATION
  Report Type: Spontaneous
  Country: US (occurrence: US)
  Receive Date: 20140311
  Receipt Date: 20140311
  Transmission Date: 20141002
  Serious: No
  Sender: FDA-Public Use
  Company Number: US-MYLANLABS-2013S1026481

PATIENT
  Sex: Female

DRUGS (3)
  1. EPROSARTAN MESYLATE TABLETS [Suspect]
     Indication: HYPERTENSION
     Route: 048
  2. OMEPRAZOLE [Concomitant]
     Route: 048
  3. DIAZEPAM [Concomitant]
     Route: 048

REACTIONS (2)
  - Pruritus generalised [Not Recovered/Not Resolved]
  - Reaction to drug excipients [Not Recovered/Not Resolved]
